FAERS Safety Report 19935506 (Version 11)
Quarter: 2022Q4

REPORT INFORMATION
  Report Type: Report from Study
  Country: US (occurrence: US)
  Receive Date: 20211009
  Receipt Date: 20221224
  Transmission Date: 20230112
  Serious: No
  Sender: FDA-Public Use
  Company Number: US-NOVARTISTESTPH-NVSC2021US231209

PATIENT
  Sex: Female

DRUGS (4)
  1. COSENTYX [Suspect]
     Active Substance: SECUKINUMAB
     Indication: Ankylosing spondylitis
     Dosage: 150 MG, QW
     Route: 058
  2. COSENTYX [Suspect]
     Active Substance: SECUKINUMAB
     Dosage: 150 MG, QMO
     Route: 058
  3. COSENTYX [Suspect]
     Active Substance: SECUKINUMAB
     Dosage: UNK
     Route: 065
     Dates: start: 20211120
  4. COSENTYX [Suspect]
     Active Substance: SECUKINUMAB
     Dosage: 300 MG, QMO
     Route: 058

REACTIONS (13)
  - Inflammation [Not Recovered/Not Resolved]
  - Back pain [Not Recovered/Not Resolved]
  - Spinal pain [Unknown]
  - Chest pain [Unknown]
  - Musculoskeletal chest pain [Unknown]
  - Sacral pain [Recovering/Resolving]
  - Condition aggravated [Unknown]
  - Pyrexia [Unknown]
  - Psoriasis [Unknown]
  - Rebound psoriasis [Recovering/Resolving]
  - Ear infection [Recovering/Resolving]
  - Alveolar osteitis [Recovering/Resolving]
  - Pruritus [Unknown]
